FAERS Safety Report 6557844-X (Version None)
Quarter: 2010Q1

REPORT INFORMATION
  Report Type: 
  Country: None (occurrence: None)
  Receive Date: 20100125
  Receipt Date: 20100106
  Transmission Date: 20100710
  Serious: No
  Sender: FDA-Public Use
  Company Number: 2010-00018

PATIENT
  Age: 62 Year
  Sex: Male
  Weight: 90.7194 kg

DRUGS (2)
  1. COLD REMEDY NASAL GEL [Suspect]
     Dosage: ONE DOSE - ONE DOSE; 1 MONTH AGO - 1 DOSE
  2. ZANTAC [Concomitant]

REACTIONS (2)
  - AGEUSIA [None]
  - ANOSMIA [None]
